FAERS Safety Report 5901781-8 (Version None)
Quarter: 2008Q3

REPORT INFORMATION
  Report Type: 
  Country: None (occurrence: None)
  Receive Date: 20080925
  Receipt Date: 20071219
  Transmission Date: 20090109
  Serious: Yes (Other)
  Sender: FDA-Public Use
  Company Number: 6045689

PATIENT
  Age: 53 Year
  Sex: Male

DRUGS (2)
  1. CONCUR         (BISOPROLOL FUMARATE) [Suspect]
     Indication: DRUG USE FOR UNKNOWN INDICATION
     Dosage: (20 MG) ORAL
     Route: 048
     Dates: start: 20071106, end: 20071106
  2. SUMATRIPTAN DURA 100 (TABLET) (SUMATRIPTAN [Suspect]
     Indication: DRUG USE FOR UNKNOWN INDICATION
     Dosage: (700 MG), ORAL
     Route: 048
     Dates: start: 20071106

REACTIONS (2)
  - COMPLETED SUICIDE [None]
  - INTENTIONAL OVERDOSE [None]
